FAERS Safety Report 8908914 (Version 1)
Quarter: 2012Q4

REPORT INFORMATION
  Report Type: 
  Country: US (occurrence: US)
  Receive Date: 20121113
  Receipt Date: 20121113
  Transmission Date: 20130627
  Serious: No
  Sender: FDA-Public Use
  Company Number: US-AMGEN-USASP2012011723

PATIENT
  Age: 42 Year
  Sex: Female

DRUGS (4)
  1. ENBREL [Suspect]
     Indication: PRODUCT USED FOR UNKNOWN INDICATION
     Dosage: UNK
  2. HUMIRA [Concomitant]
     Indication: PSORIATIC ARTHROPATHY
     Dosage: 40 mg, q2wk
     Dates: start: 201111
  3. METHOTREXATE [Concomitant]
     Dosage: 10 mg, UNK
  4. VITAMINS                           /00067501/ [Concomitant]

REACTIONS (1)
  - Therapeutic response decreased [Unknown]
